FAERS Safety Report 8252311-X (Version None)
Quarter: 2012Q2

REPORT INFORMATION
  Report Type: 
  Country: None (occurrence: None)
  Receive Date: 20120402
  Receipt Date: 20110809
  Transmission Date: 20120825
  Serious: No
  Sender: FDA-Public Use
  Company Number: US-ABBOTT-11P-163-0804506-00

PATIENT
  Sex: Male
  Weight: 99.88 kg

DRUGS (9)
  1. TERAZOSIN HCL [Concomitant]
     Indication: HYPERTENSION
     Route: 065
  2. ANDROGEL [Suspect]
     Indication: BLOOD TESTOSTERONE DECREASED
     Route: 062
     Dates: start: 20110301, end: 20110531
  3. AMLODIPINE [Concomitant]
     Indication: HYPERTENSION
     Route: 065
  4. LOSARTAN POTASSIUM [Concomitant]
     Indication: HYPERTENSION
     Route: 065
  5. CLARITIN [Concomitant]
     Indication: SINUS DISORDER
  6. ANDROGEL [Suspect]
     Dates: start: 20110601
  7. CELEBREX [Concomitant]
     Indication: ARTHRITIS
  8. METFORMIN HCL [Concomitant]
     Indication: DIABETES MELLITUS
  9. TERBINAFINE HCL [Concomitant]
     Indication: ILL-DEFINED DISORDER

REACTIONS (1)
  - DRUG INEFFECTIVE [None]
